FAERS Safety Report 8661947 (Version 3)
Quarter: 2012Q4

REPORT INFORMATION
  Report Type: Report from Study
  Country: JP (occurrence: JP)
  Receive Date: 20120712
  Receipt Date: 20121107
  Transmission Date: 20130627
  Serious: Yes (Death)
  Sender: FDA-Public Use
  Company Number: JP-CELGENEUS-087-50794-12071077

PATIENT
  Age: 73 None
  Sex: Male

DRUGS (20)
  1. VIDAZA [Suspect]
     Indication: MDS
     Dosage: 75 milligram/sq. meter
     Route: 041
     Dates: start: 20111101, end: 20111107
  2. VIDAZA [Suspect]
     Dosage: 75 milligram/sq. meter
     Route: 041
     Dates: start: 20111207, end: 20111213
  3. VIDAZA [Suspect]
     Dosage: 75 milligram/sq. meter
     Route: 041
     Dates: start: 20120110, end: 20120116
  4. VIDAZA [Suspect]
     Dosage: 75 milligram/sq. meter
     Route: 041
     Dates: start: 20120207, end: 20120215
  5. VIDAZA [Suspect]
     Dosage: 75 milligram/sq. meter
     Route: 041
     Dates: start: 20120306, end: 20120314
  6. PARIET [Concomitant]
     Indication: DRUG USE FOR UNKNOWN INDICATION
     Route: 065
  7. SELBEX [Concomitant]
     Indication: DRUG USE FOR UNKNOWN INDICATION
     Route: 065
  8. ITRIZOLE [Concomitant]
     Indication: DRUG USE FOR UNKNOWN INDICATION
     Route: 065
  9. GENINAX [Concomitant]
     Indication: DRUG USE FOR UNKNOWN INDICATION
     Route: 065
     Dates: end: 20120507
  10. BEZATATE [Concomitant]
     Indication: DRUG USE FOR UNKNOWN INDICATION
     Route: 065
  11. LENDORMIN [Concomitant]
     Indication: DRUG USE FOR UNKNOWN INDICATION
     Route: 065
  12. JUSO [Concomitant]
     Indication: DRUG USE FOR UNKNOWN INDICATION
     Route: 065
  13. SALOBEL [Concomitant]
     Indication: DRUG USE FOR UNKNOWN INDICATION
     Route: 065
  14. LOPEMIN [Concomitant]
     Indication: DRUG USE FOR UNKNOWN INDICATION
     Route: 065
     Dates: start: 20111122
  15. LAC-B [Concomitant]
     Indication: DRUG USE FOR UNKNOWN INDICATION
     Route: 065
     Dates: start: 20111109
  16. BISMUTH [Concomitant]
     Indication: DRUG USE FOR UNKNOWN INDICATION
     Route: 065
     Dates: start: 20111113
  17. LASIX [Concomitant]
     Indication: DRUG USE FOR UNKNOWN INDICATION
     Route: 065
  18. ZOSYN [Concomitant]
     Indication: DRUG USE FOR UNKNOWN INDICATION
     Route: 065
     Dates: start: 20111114
  19. ALBUMIN TANNATE [Concomitant]
     Indication: DRUG USE FOR UNKNOWN INDICATION
     Route: 065
     Dates: start: 20111113
  20. BIOFERMIN R [Concomitant]
     Indication: DRUG USE FOR UNKNOWN INDICATION
     Route: 065
     Dates: start: 20111113

REACTIONS (2)
  - Myelodysplastic syndrome [Fatal]
  - Pancytopenia [Fatal]
